FAERS Safety Report 12185482 (Version 14)
Quarter: 2019Q3

REPORT INFORMATION
  Report Type: Spontaneous
  Country: CA (occurrence: CA)
  Receive Date: 20160316
  Receipt Date: 20190923
  Transmission Date: 20191004
  Serious: Yes (Hospitalization, Other)
  Sender: FDA-Public Use
  Company Number: CA-PFIZER INC-2016145185

PATIENT
  Age: 75 Year
  Sex: Female

DRUGS (145)
  1. METHOTREXATE SODIUM. [Suspect]
     Active Substance: METHOTREXATE SODIUM
     Indication: RHEUMATOID ARTHRITIS
     Dosage: 7.5 TO 12.5 MG, WEEKLY
     Route: 058
     Dates: start: 2008, end: 2009
  2. SULFASALAZINE. [Suspect]
     Active Substance: SULFASALAZINE
     Indication: RHEUMATOID ARTHRITIS
     Dosage: 2.5 G, DAILY
     Route: 048
     Dates: start: 200404, end: 2008
  3. NORTRIPTYLINE HYDROCHLORIDE/PERPHENAZINE [Suspect]
     Active Substance: NORTRIPTYLINE HYDROCHLORIDE\PERPHENAZINE
     Indication: SLEEP DISORDER
     Dosage: 10MG TABLETS 1-3 TABLETS EVERY EVENING
     Route: 048
  4. ACTEMRA [Suspect]
     Active Substance: TOCILIZUMAB
     Dosage: 488 MG, CYCLIC Q4WK
     Route: 042
     Dates: start: 201310, end: 20150303
  5. PREDNISONE. [Concomitant]
     Active Substance: PREDNISONE
     Dosage: 5 MG, DAILY
     Route: 065
  6. NASONEX [Concomitant]
     Active Substance: MOMETASONE FUROATE
     Dosage: 2 DF, 2X/DAY
  7. ACETAMINOPHEN W/OXYCODONE HYDROCHLORIDE [Concomitant]
     Active Substance: ACETAMINOPHEN\OXYCODONE HYDROCHLORIDE
     Dosage: 1 DF, UNK
  8. TRAZODONE [Concomitant]
     Active Substance: TRAZODONE HYDROCHLORIDE
     Dosage: UNK
  9. OXYCODONE TEREPHTHALATE [Concomitant]
     Active Substance: OXYCODONE TEREPHTHALATE
     Indication: PAIN
     Dosage: UNK
     Route: 065
  10. DOCOSAHEXAENOIC ACID/EICOSAPENTAENOIC ACID [Concomitant]
     Dosage: UNK UNK, QD
     Route: 065
  11. FOLIC ACID. [Concomitant]
     Active Substance: FOLIC ACID
     Dosage: UNK
  12. RETINOL PALMITATE [Concomitant]
     Active Substance: VITAMIN A PALMITATE
     Dosage: UNK
  13. VITAMINE C [Concomitant]
     Active Substance: ASCORBIC ACID
     Dosage: UNK
  14. PERFENAZINE [Concomitant]
     Active Substance: PERPHENAZINE
     Indication: SLEEP DISORDER
     Dosage: 10 MG, UNK
     Route: 048
  15. OXYCODONE AND ACETAMINOPHEN [Concomitant]
     Active Substance: ACETAMINOPHEN\OXYCODONE HYDROCHLORIDE
     Dosage: UNK
  16. EPA DHA 720 [Concomitant]
     Active Substance: DOCONEXENT\ICOSAPENT
     Dosage: UNK
  17. CHOLECALCIFEROL [Concomitant]
     Active Substance: CHOLECALCIFEROL
     Dosage: UNK
  18. VITAMIN B3 [Concomitant]
     Active Substance: NIACIN
     Dosage: UNK
  19. VITAMIN B1 [Concomitant]
     Active Substance: THIAMINE HYDROCHLORIDE
     Dosage: UNK
  20. ENBREL [Suspect]
     Active Substance: ETANERCEPT
     Indication: RHEUMATOID ARTHRITIS
     Dosage: 50 MG, QWK
     Route: 058
     Dates: start: 200804, end: 201310
  21. XELJANZ [Suspect]
     Active Substance: TOFACITINIB CITRATE
     Dosage: 5 MG, 1X/DAY
     Route: 048
  22. FENTANYL. [Suspect]
     Active Substance: FENTANYL
     Dosage: UNK
     Route: 065
  23. ORENCIA [Suspect]
     Active Substance: ABATACEPT
     Dosage: UNK, WEEKLY
     Route: 058
  24. ACTEMRA [Suspect]
     Active Substance: TOCILIZUMAB
     Dosage: UNK
     Route: 048
  25. APO GABAPENTIN [Suspect]
     Active Substance: GABAPENTIN
     Dosage: UNK
  26. ABATACEPT [Suspect]
     Active Substance: ABATACEPT
     Indication: RHEUMATOID ARTHRITIS
     Dosage: 750 MG, MONTHLY
     Route: 042
  27. OMEGA-3 FATTY ACIDS [Concomitant]
     Active Substance: OMEGA-3 FATTY ACIDS
     Dosage: 1200 MG, 2X/DAY
  28. ACTONEL [Concomitant]
     Active Substance: RISEDRONATE SODIUM
     Dosage: 36 MG, WEEKLY
  29. ACLASTA [Concomitant]
     Active Substance: ZOLEDRONIC ACID
     Dosage: 750 MG, UNK
     Route: 042
  30. TRAZODONE HYDROCHLORIDE. [Concomitant]
     Active Substance: TRAZODONE HYDROCHLORIDE
     Dosage: 50 MG, 1X/DAY AT BEDTIME
     Route: 048
  31. FISH OIL [Concomitant]
     Active Substance: FISH OIL
     Dosage: 1200 MG, 2X/DAY
  32. BIOTIN [Concomitant]
     Active Substance: BIOTIN
     Dosage: UNK
  33. PANTOPRAZOLE [Concomitant]
     Active Substance: PANTOPRAZOLE
     Dosage: 40 MG, 1X/DAY
  34. PANTOPRAZOLE [Concomitant]
     Active Substance: PANTOPRAZOLE
     Dosage: UNK
  35. THIAMINE HYDROCHLORIDE. [Concomitant]
     Active Substance: THIAMINE HYDROCHLORIDE
     Dosage: UNK
  36. THIAMINE HYDROCHLORIDE. [Concomitant]
     Active Substance: THIAMINE HYDROCHLORIDE
     Dosage: UNK
  37. VITAMIN D3 [Concomitant]
     Active Substance: CHOLECALCIFEROL
     Dosage: UNK
  38. THIAMINE MONONITRATE [Concomitant]
     Active Substance: THIAMINE MONONITRATE
     Dosage: UNK
  39. LOPERAMIDE [Concomitant]
     Active Substance: LOPERAMIDE
     Dosage: UNK
  40. ATROPINE SULFATE/DIPHENOXYLATE HYDROCHLORIDE [Concomitant]
     Dosage: UNK
  41. MYOCHRYSINE [Suspect]
     Active Substance: GOLD SODIUM THIOMALATE
     Indication: RHEUMATOID ARTHRITIS
     Dosage: 50 MG, EVERY 3 WEEKS
     Route: 030
     Dates: start: 200605, end: 200802
  42. ACTEMRA [Suspect]
     Active Substance: TOCILIZUMAB
     Indication: RHEUMATOID ARTHRITIS
     Dosage: 488 MG, MONTHLY
     Route: 042
     Dates: start: 201310, end: 20150303
  43. HYDROXYCHLOROQUINE [Suspect]
     Active Substance: HYDROXYCHLOROQUINE
     Indication: RHEUMATOID ARTHRITIS
     Dosage: 400 MG, 1X/DAY
     Route: 065
  44. FENTANYL TRANSDERMAL SYSTEM [Suspect]
     Active Substance: FENTANYL
     Dosage: UNK PATCH
     Route: 065
  45. PERPHENAZINE. [Concomitant]
     Active Substance: PERPHENAZINE
     Indication: SLEEP DISORDER
     Dosage: 10 MG, UNK
     Route: 048
  46. TYLENOL [Concomitant]
     Active Substance: ACETAMINOPHEN
     Dosage: 1000 MG, 1X/DAY
     Route: 048
  47. DOCOSAHEXAENOIC ACID [Concomitant]
     Active Substance: DOCONEXENT
     Indication: RHEUMATOID ARTHRITIS
     Dosage: UNK UNK, QD
     Route: 065
  48. DIPHENOXYLATE HYDROCHLORIDE [Concomitant]
     Active Substance: DIPHENOXYLATE HYDROCHLORIDE
     Dosage: 2.5 MG, 1X/DAY
     Route: 065
  49. DIPHENOXYLATE HYDROCHLORIDE [Concomitant]
     Active Substance: DIPHENOXYLATE HYDROCHLORIDE
     Dosage: UNK
  50. ERGOCALCIFEROL. [Concomitant]
     Active Substance: ERGOCALCIFEROL
     Dosage: 400 IU, 1X/DAY
  51. NORTRIPTYLINE HYDROCHLORIDE. [Concomitant]
     Active Substance: NORTRIPTYLINE HYDROCHLORIDE
     Dosage: 10 MG, UNK
     Route: 048
  52. PYRIDOXINE HYDROCHLORIDE. [Concomitant]
     Active Substance: PYRIDOXINE HYDROCHLORIDE
     Dosage: UNK
  53. VITAMIN A [RETINOL] [Concomitant]
     Active Substance: RETINOL
     Dosage: UNK
  54. VITAMIN C [Concomitant]
     Active Substance: ASCORBIC ACID
     Dosage: UNK
  55. GABAPENTIN. [Suspect]
     Active Substance: GABAPENTIN
     Dosage: 100 MG, 2X/DAY
     Route: 048
  56. FENTANYL. [Suspect]
     Active Substance: FENTANYL
     Dosage: UNK
     Route: 065
  57. XELJANZ [Suspect]
     Active Substance: TOFACITINIB CITRATE
     Dosage: 5 MG, UNK
     Route: 048
  58. OXYCONTIN [Suspect]
     Active Substance: OXYCODONE HYDROCHLORIDE
     Dosage: UNK
     Route: 065
  59. MYOCHRYSINE [Suspect]
     Active Substance: GOLD SODIUM THIOMALATE
     Dosage: 60 MG, CYCLIC Q3WK
     Route: 030
  60. APO CELECOXIB [Suspect]
     Active Substance: CELECOXIB
     Indication: ARTHRITIS
     Dosage: UNK
     Route: 048
  61. NEXIUM [Concomitant]
     Active Substance: ESOMEPRAZOLE MAGNESIUM
     Dosage: 40 MG, 2X/DAY
  62. NASONEX [Concomitant]
     Active Substance: MOMETASONE FUROATE
     Dosage: 2 SPRAYS, 2X/DAY
     Route: 045
  63. ESOMEPRAZOLE. [Concomitant]
     Active Substance: ESOMEPRAZOLE MAGNESIUM
     Dosage: 400 MG, 2X/DAY
  64. ERGOCALCIFEROL. [Concomitant]
     Active Substance: ERGOCALCIFEROL
     Dosage: UNK
  65. ERGOCALCIFEROL. [Concomitant]
     Active Substance: ERGOCALCIFEROL
     Dosage: UNK, 1X/DAY
     Route: 065
  66. NORTRIPTYLINE HYDROCHLORIDE. [Concomitant]
     Active Substance: NORTRIPTYLINE HYDROCHLORIDE
     Indication: SLEEP DISORDER
     Dosage: 10 MG, CYCLIC QH
     Route: 048
  67. BIOTIN [Concomitant]
     Active Substance: BIOTIN
     Dosage: UNK
  68. PANTOPRAZOLE [Concomitant]
     Active Substance: PANTOPRAZOLE
     Dosage: UNK
  69. FERROUS FUMARATE [Concomitant]
     Active Substance: FERROUS FUMARATE
     Dosage: UNK
  70. RETINOL PALMITATE [Concomitant]
     Active Substance: VITAMIN A PALMITATE
     Dosage: UNK
  71. NORTRIPTYLINE [Concomitant]
     Active Substance: NORTRIPTYLINE
     Dosage: UNK
  72. LOMOTIL [Concomitant]
     Active Substance: ATROPINE SULFATE\DIPHENOXYLATE HYDROCHLORIDE
     Dosage: UNK
  73. METHOTREXATE SODIUM. [Suspect]
     Active Substance: METHOTREXATE SODIUM
     Dosage: UNK, WEEKLY
     Route: 058
  74. METHOTREXATE SODIUM. [Suspect]
     Active Substance: METHOTREXATE SODIUM
     Dosage: UNK, WEEKLY
     Route: 058
  75. FENTANYL. [Suspect]
     Active Substance: FENTANYL
     Dosage: UNK
     Route: 065
  76. ORENCIA [Suspect]
     Active Substance: ABATACEPT
     Dosage: 750 MG, MONTHLY
     Route: 067
  77. FENTANYL TRANSDERMAL SYSTEM [Suspect]
     Active Substance: FENTANYL
     Dosage: UNK
  78. PREDNISONE. [Concomitant]
     Active Substance: PREDNISONE
     Dosage: UNK5.0 GBQ, QD
  79. ACLASTA [Concomitant]
     Active Substance: ZOLEDRONIC ACID
     Dosage: UNK
  80. TYLENOL [Concomitant]
     Active Substance: ACETAMINOPHEN
     Dosage: 500 MG 2 TABS, 1X/DAY
     Route: 048
  81. NASONEX [Concomitant]
     Active Substance: MOMETASONE FUROATE
     Dosage: UNK UNK, BID (SPRAY METERED DOSE)
  82. ESOMEPRAZOLE MAGNESIUM TRIHYDRATE [Concomitant]
     Active Substance: ESOMEPRAZOLE MAGNESIUM
     Dosage: 40 IU, 1X/DAY
     Route: 065
  83. ACETAMINOPHEN W/OXYCODONE HYDROCHLORIDE [Concomitant]
     Active Substance: ACETAMINOPHEN\OXYCODONE HYDROCHLORIDE
     Indication: PAIN
     Dosage: UNK
  84. ASCORBIC ACID. [Concomitant]
     Active Substance: ASCORBIC ACID
     Dosage: UNK
     Route: 065
  85. VITAMIN D3 [Concomitant]
     Active Substance: CHOLECALCIFEROL
     Dosage: UNK
  86. FERROUS GLUCONATE [Concomitant]
     Active Substance: FERROUS GLUCONATE
     Dosage: 300 MILLIGRAM, QD
     Route: 065
  87. VITAMIN B6 [Concomitant]
     Active Substance: PYRIDOXINE HYDROCHLORIDE
     Dosage: UNK
  88. CELECOXIB. [Suspect]
     Active Substance: CELECOXIB
     Indication: ADENOMATOUS POLYPOSIS COLI
     Dosage: UNK
     Route: 048
  89. XELJANZ [Suspect]
     Active Substance: TOFACITINIB CITRATE
     Dosage: 5 MG, 2X/DAY
     Route: 048
  90. ORENCIA [Suspect]
     Active Substance: ABATACEPT
     Dosage: 750 MG, UNK
     Route: 042
  91. NORTRIPTYLINE HYDROCHLORIDE/PERPHENAZINE [Suspect]
     Active Substance: NORTRIPTYLINE HYDROCHLORIDE\PERPHENAZINE
     Dosage: 10 MILLIGRAM
     Route: 048
  92. OMEGA-3 [SALMO SALAR OIL] [Suspect]
     Active Substance: ATLANTIC SALMON OIL
     Dosage: UNK
  93. DIPHENOXYLATE [Concomitant]
     Active Substance: DIPHENOXYLATE
     Dosage: 2.5/0.25 MILLIGRAM, QD
  94. CALCIUM [Concomitant]
     Active Substance: CALCIUM
     Dosage: UNK
  95. FERGON [Concomitant]
     Active Substance: FERROUS GLUCONATE
     Dosage: 300 MG, 1X/DAY
  96. TRAZODONE HYDROCHLORIDE. [Concomitant]
     Active Substance: TRAZODONE HYDROCHLORIDE
     Dosage: 50 MG, 1X/DAY
     Route: 048
  97. D-ALPHA TOCOPHEROL [Concomitant]
     Active Substance: .ALPHA.-TOCOPHEROL, D-
     Dosage: 1200 MG, 2X/DAY
     Route: 065
  98. DIPHENOXYLATE HYDROCHLORIDE [Concomitant]
     Active Substance: DIPHENOXYLATE HYDROCHLORIDE
     Dosage: UNK, 1X/DAY
  99. ESOMEPRAZOLE. [Concomitant]
     Active Substance: ESOMEPRAZOLE MAGNESIUM
     Dosage: 40 MG, 2X/DAY
     Route: 065
  100. LOPERAMIDE HYDROCHLORIDE. [Concomitant]
     Active Substance: LOPERAMIDE HYDROCHLORIDE
     Dosage: 2.5 MG, UNK
  101. OMEGA 3 2100 [Concomitant]
     Indication: RHEUMATOID ARTHRITIS
     Dosage: 1200 MG, 2X/DAY
  102. GENTEAL [HYPROMELLOSE] [Concomitant]
     Indication: DRY EYE
     Dosage: UNK
  103. PANTOPRAZOLE [Concomitant]
     Active Substance: PANTOPRAZOLE
     Dosage: 400 MG, 1X/DAY
  104. FERROUS FUMARATE [Concomitant]
     Active Substance: FERROUS FUMARATE
     Dosage: UNK
  105. DOCOSAHEXAENOIC ACID/EICOSAPENTAENOIC ACID [Concomitant]
     Dosage: 1200 MG, 2X/DAY
  106. FOLIC ACID. [Concomitant]
     Active Substance: FOLIC ACID
     Dosage: UNK
  107. RIBOFLAVIN [Concomitant]
     Active Substance: RIBOFLAVIN
     Dosage: UNK
  108. SODIUM ASCORBATE [Concomitant]
     Active Substance: SODIUM ASCORBATE
     Dosage: UNK
  109. THIAMINE. [Concomitant]
     Active Substance: THIAMINE
     Dosage: UNK
  110. METHOTREXATE SODIUM. [Suspect]
     Active Substance: METHOTREXATE SODIUM
     Dosage: 7.5 TO 12.5 MG, WEEKLY
     Route: 058
     Dates: start: 20110516, end: 20110913
  111. CELEBREX [Suspect]
     Active Substance: CELECOXIB
     Indication: RHEUMATOID ARTHRITIS
     Dosage: UNK, OCCLUSIVE DRESSING TECHNIQUE
  112. ORENCIA [Suspect]
     Active Substance: ABATACEPT
     Indication: RHEUMATOID ARTHRITIS
     Dosage: 750 MG, MONTHLY
     Route: 042
     Dates: start: 20150331, end: 20160223
  113. ORENCIA [Suspect]
     Active Substance: ABATACEPT
     Dosage: 750 MG, CYCLIC Q3WK
     Route: 042
  114. ORENCIA [Suspect]
     Active Substance: ABATACEPT
     Dosage: 750 MG, MONTHLY
     Route: 067
  115. ARAVA [Suspect]
     Active Substance: LEFLUNOMIDE
     Dosage: 20 MG, QD
     Route: 048
  116. MULTIVITAMIN [Concomitant]
     Active Substance: VITAMINS
     Dosage: UNK
  117. VITAMIN D [Concomitant]
     Active Substance: VITAMIN D NOS
     Dosage: 400 IU, DAILY
  118. VITAMIN D [Concomitant]
     Active Substance: VITAMIN D NOS
     Dosage: 400 DF, 1X/DAY
  119. ACLASTA [Concomitant]
     Active Substance: ZOLEDRONIC ACID
     Dosage: 750 MG, MONTHLY
     Route: 042
  120. ACLASTA [Concomitant]
     Active Substance: ZOLEDRONIC ACID
     Dosage: 750 MG, (EVERY FOUR WEEKS)
     Route: 042
  121. FERGON [Concomitant]
     Active Substance: FERROUS GLUCONATE
     Dosage: 300 MG, DAILY
  122. LOMOTIL [Concomitant]
     Active Substance: ATROPINE SULFATE\DIPHENOXYLATE HYDROCHLORIDE
     Dosage: 2.5MG 3-4 TIMES/DAY
  123. LOMOTIL [Concomitant]
     Active Substance: ATROPINE SULFATE\DIPHENOXYLATE HYDROCHLORIDE
     Dosage: 2.5 MG, QD
  124. ESOMEPRAZOLE MAGNESIUM TRIHYDRATE [Concomitant]
     Active Substance: ESOMEPRAZOLE MAGNESIUM
     Dosage: 40 MG, 2X/DAY
     Route: 065
  125. ESOMEPRAZOLE. [Concomitant]
     Active Substance: ESOMEPRAZOLE MAGNESIUM
     Dosage: UNK
  126. OMEGA 3 2100 [Concomitant]
     Dosage: UNK, Q2WK
  127. RIBOFLAVIN [Concomitant]
     Active Substance: RIBOFLAVIN
     Dosage: UNK
  128. ENBREL [Suspect]
     Active Substance: ETANERCEPT
     Dosage: 50 MG, WEEKLY
     Route: 058
  129. SULFASALAZINE. [Suspect]
     Active Substance: SULFASALAZINE
     Dosage: 500 MG, 1X/DAY
     Route: 048
  130. GABAPENTIN. [Suspect]
     Active Substance: GABAPENTIN
     Dosage: 100 MG, 1 EVERY 2 DAYS
     Route: 065
  131. CELEBREX [Suspect]
     Active Substance: CELECOXIB
     Indication: ARTHRITIS
     Dosage: UNK
     Route: 048
  132. PLAQUENIL [Suspect]
     Active Substance: HYDROXYCHLOROQUINE SULFATE
     Indication: RHEUMATOID ARTHRITIS
     Dosage: 400 MG, DAILY (QD)
     Route: 065
     Dates: start: 2008, end: 2008
  133. HYDROXYCHLOROQUINE SULFATE. [Suspect]
     Active Substance: HYDROXYCHLOROQUINE SULFATE
     Dosage: UNK
     Route: 065
  134. APO GABAPENTIN [Suspect]
     Active Substance: GABAPENTIN
     Dosage: 100 MG, 2X/DAY
     Route: 048
  135. TECTA [Concomitant]
     Active Substance: PANTOPRAZOLE MAGNESIUM
     Dosage: 40 MG, DAILY
  136. ACLASTA [Concomitant]
     Active Substance: ZOLEDRONIC ACID
     Dosage: 750 MG, Q2WK
     Route: 042
  137. FERGON [Concomitant]
     Active Substance: FERROUS GLUCONATE
     Dosage: UNK
  138. PERCOCET [Concomitant]
     Active Substance: ACETAMINOPHEN\OXYCODONE HYDROCHLORIDE
     Indication: PAIN
     Dosage: 1 TAB 4-6H AS NEEDED
  139. TECTA [Concomitant]
     Active Substance: PANTOPRAZOLE MAGNESIUM
     Dosage: 40 MILLIGRAM, QD
  140. ASCORBIC ACID. [Concomitant]
     Active Substance: ASCORBIC ACID
     Dosage: UNK
  141. NICOTINAMIDE [Concomitant]
     Active Substance: NIACINAMIDE
     Dosage: UNK
  142. SODIUM [Concomitant]
     Active Substance: SODIUM
     Dosage: UNK
  143. VITAMIN B12 [Concomitant]
     Active Substance: CYANOCOBALAMIN
     Dosage: UNK
  144. DOCOSAHEXAENOIC ACID/EICOSAPENTAENOIC ACID [Concomitant]
     Dosage: UNK, Q2WK
     Route: 065
  145. VITAMIN E [Concomitant]
     Active Substance: .ALPHA.-TOCOPHEROL
     Dosage: UNK

REACTIONS (41)
  - Drug ineffective [Unknown]
  - Blood magnesium increased [Unknown]
  - Blood potassium increased [Unknown]
  - Hypersensitivity [Unknown]
  - Myocardial infarction [Unknown]
  - Nausea [Unknown]
  - Infection [Unknown]
  - Exostosis [Unknown]
  - Joint swelling [Unknown]
  - Pain [Unknown]
  - Crohn^s disease [Unknown]
  - Treatment failure [Unknown]
  - Blood creatinine increased [Unknown]
  - Fatigue [Unknown]
  - Osteopenia [Unknown]
  - Drug intolerance [Unknown]
  - Deformity [Unknown]
  - Pleural thickening [Unknown]
  - Dry eye [Unknown]
  - Osteoarthritis [Unknown]
  - Deafness neurosensory [Unknown]
  - Mobility decreased [Unknown]
  - Rheumatoid arthritis [Unknown]
  - Gastrointestinal disorder [Unknown]
  - Therapeutic product effect decreased [Unknown]
  - Arthralgia [Unknown]
  - Arthropathy [Unknown]
  - Bone cyst [Unknown]
  - Osteosclerosis [Unknown]
  - Renal impairment [Unknown]
  - Contraindicated product administered [Unknown]
  - Diarrhoea [Unknown]
  - Sleep disorder [Unknown]
  - Cyst [Unknown]
  - Epigastric discomfort [Unknown]
  - Skin lesion [Unknown]
  - Musculoskeletal stiffness [Unknown]
  - Pain in extremity [Unknown]
  - Drug hypersensitivity [Unknown]
  - Pleural fibrosis [Unknown]
  - Presbyacusis [Unknown]

NARRATIVE: CASE EVENT DATE: 200901
